FAERS Safety Report 5379805-9 (Version None)
Quarter: 2007Q3

REPORT INFORMATION
  Report Type: 
  Country: None (occurrence: None)
  Receive Date: 20070703
  Receipt Date: 20070621
  Transmission Date: 20080115
  Serious: Yes (Hospitalization)
  Sender: FDA-Public Use
  Company Number: GXKR2007GB05364

PATIENT
  Age: 43 Year
  Sex: Male
  Weight: 89 kg

DRUGS (2)
  1. LISINOPRIL [Suspect]
     Dosage: 2.5 MG, 2/?, ORAL
     Route: 048
     Dates: start: 20070509, end: 20070531
  2. SIMVASTATIN [Concomitant]

REACTIONS (4)
  - DISEASE RECURRENCE [None]
  - HYPOAESTHESIA [None]
  - HYPOAESTHESIA FACIAL [None]
  - HYPOAESTHESIA ORAL [None]
